FAERS Safety Report 23706161 (Version 4)
Quarter: 2024Q3

REPORT INFORMATION
  Report Type: Spontaneous
  Country: US (occurrence: US)
  Receive Date: 20240404
  Receipt Date: 20240712
  Transmission Date: 20241017
  Serious: Yes (Other)
  Sender: BRISTOL MYERS SQUIBB
  Company Number: US-BRISTOL-MYERS SQUIBB COMPANY-2024-053330

PATIENT
  Age: 77 Year
  Sex: Female
  Weight: 87.09 kg

DRUGS (2)
  1. POMALYST [Suspect]
     Active Substance: POMALIDOMIDE
     Indication: Plasma cell myeloma
     Dosage: 3WEEKS ON 1 WEEK OFFV
     Route: 048
  2. POMALYST [Suspect]
     Active Substance: POMALIDOMIDE
     Dosage: FREQUENCY: 21 D EVERY 28 DAY/DAILY FOR 21 DAYS THEN 7 DAYS OFF
     Route: 048

REACTIONS (5)
  - Brain fog [Recovering/Resolving]
  - Tremor [Recovering/Resolving]
  - Neuropathy peripheral [Recovering/Resolving]
  - Asthenia [Not Recovered/Not Resolved]
  - Neuralgia [Unknown]
